FAERS Safety Report 20548215 (Version 1)
Quarter: 2022Q1

REPORT INFORMATION
  Report Type: Spontaneous
  Country: MX (occurrence: MX)
  Receive Date: 20220303
  Receipt Date: 20220303
  Transmission Date: 20220423
  Serious: Yes (Hospitalization)
  Sender: FDA-Public Use
  Company Number: MX-ABBVIE-22K-107-4296758-00

PATIENT
  Age: 62 Year
  Sex: Male

DRUGS (2)
  1. VENCLEXTA [Suspect]
     Active Substance: VENETOCLAX
     Indication: Product used for unknown indication
     Dosage: RAMP UP KIT WEEK 1
     Route: 048
     Dates: start: 20220215, end: 20220220
  2. ALLOPURINOL [Concomitant]
     Active Substance: ALLOPURINOL
     Indication: Product used for unknown indication
     Route: 065
     Dates: start: 20220214

REACTIONS (8)
  - COVID-19 [Recovering/Resolving]
  - Muscle spasms [Recovered/Resolved]
  - Back pain [Unknown]
  - Depression [Unknown]
  - Insomnia [Recovered/Resolved]
  - Decreased appetite [Recovered/Resolved]
  - Jaundice [Unknown]
  - Localised oedema [Unknown]

NARRATIVE: CASE EVENT DATE: 20220216
